FAERS Safety Report 12665445 (Version 5)
Quarter: 2016Q4

REPORT INFORMATION
  Report Type: Report from Study
  Country: FR (occurrence: FR)
  Receive Date: 20160818
  Receipt Date: 20161026
  Transmission Date: 20170207
  Serious: Yes (Hospitalization)
  Sender: FDA-Public Use
  Company Number: FR-TEVA-684759USA

PATIENT
  Age: 59 Year
  Sex: Female
  Weight: 79 kg

DRUGS (15)
  1. BENDAMUSTINE [Suspect]
     Active Substance: BENDAMUSTINE
     Dosage: CYCLE 2  DAY 1 AND DAY 2
     Route: 042
     Dates: start: 20160719
  2. INNOHEP [Concomitant]
     Active Substance: TINZAPARIN SODIUM
     Indication: PHLEBITIS
     Route: 058
     Dates: start: 20151201, end: 201605
  3. ZELITREX [Concomitant]
     Active Substance: VALACYCLOVIR HYDROCHLORIDE
     Indication: PROPHYLAXIS
     Route: 048
     Dates: start: 20160621
  4. PYOSTACINE [Concomitant]
     Active Substance: PRISTINAMYCIN
     Indication: INFECTION PROPHYLAXIS
     Route: 048
     Dates: start: 20160621, end: 20160621
  5. RITUXIMAB [Suspect]
     Active Substance: RITUXIMAB
     Indication: CHRONIC LYMPHOCYTIC LEUKAEMIA
     Dosage: 880 MILLIGRAM DAILY; (500 MG/M2,1 IN 1 M)
     Route: 042
     Dates: start: 20160719, end: 20160719
  6. LEDERFOLIN [Concomitant]
     Active Substance: LEUCOVORIN CALCIUM
     Indication: INFECTION PROPHYLAXIS
     Route: 048
     Dates: start: 20160621
  7. VENETOCLAX  (GDC-0199) (ABT-199) [Suspect]
     Active Substance: VENETOCLAX
     Dosage: CYCLE 2 DAY 1 AND DAY 2
     Route: 048
     Dates: start: 20160719
  8. ARANESP [Concomitant]
     Active Substance: DARBEPOETIN ALFA
     Indication: ANAEMIA
     Route: 058
  9. VANCOMYCIN [Concomitant]
     Active Substance: VANCOMYCIN
     Indication: INFECTION PROPHYLAXIS
     Route: 042
     Dates: start: 20160621
  10. BENDAMUSTINE [Suspect]
     Active Substance: BENDAMUSTINE
     Indication: CHRONIC LYMPHOCYTIC LEUKAEMIA
     Dosage: 118.3 MG (70 MG/M2,1 IN 1 M)
     Route: 042
     Dates: start: 20160621, end: 20160719
  11. VENETOCLAX (GDC-0199) (ABT-199) [Suspect]
     Active Substance: VENETOCLAX
     Indication: CHRONIC LYMPHOCYTIC LEUKAEMIA
     Dosage: 50MG, 1 IN 1D
     Route: 048
     Dates: start: 20160711, end: 20160719
  12. RITUXIMAB [Suspect]
     Active Substance: RITUXIMAB
     Dosage: 800 MG
     Route: 042
     Dates: end: 20160719
  13. INEXIUM [Concomitant]
     Active Substance: ESOMEPRAZOLE
     Indication: PROPHYLAXIS
     Route: 048
     Dates: start: 20160620
  14. FASTURTEC [Concomitant]
     Active Substance: RASBURICASE
  15. BACTRIM [Concomitant]
     Active Substance: SULFAMETHOXAZOLE\TRIMETHOPRIM
     Indication: INFECTION PROPHYLAXIS
     Route: 048
     Dates: start: 20160621

REACTIONS (2)
  - Cytokine storm [Unknown]
  - Tumour lysis syndrome [Recovered/Resolved]

NARRATIVE: CASE EVENT DATE: 20160719
